FAERS Safety Report 6411053-3 (Version None)
Quarter: 2009Q4

REPORT INFORMATION
  Report Type: 
  Country: None (occurrence: None)
  Receive Date: 20091021
  Receipt Date: 20091021
  Transmission Date: 20100525
  Serious: Yes (Hospitalization, Disabling)
  Sender: FDA-Public Use
  Company Number: None

PATIENT
  Sex: Female
  Weight: 55.3388 kg

DRUGS (1)
  1. SINGULAIR [Suspect]
     Indication: DYSPNOEA
     Dosage: 10 MG 1X DAY PO
     Route: 048
     Dates: start: 20081213, end: 20090901

REACTIONS (1)
  - VAGINITIS BACTERIAL [None]
